FAERS Safety Report 23544363 (Version 1)
Quarter: 2024Q1

REPORT INFORMATION
  Report Type: Other
  Country: DE (occurrence: DE)
  Receive Date: 20240220
  Receipt Date: 20240220
  Transmission Date: 20240410
  Serious: Yes (Life-Threatening, Hospitalization, Other)
  Sender: FDA-Public Use
  Company Number: DE-BIOLOGICAL E. LTD-2153423

PATIENT
  Age: 79 Year
  Sex: Male

DRUGS (7)
  1. PANTOPRAZOLE SODIUM I.V. [Suspect]
     Active Substance: PANTOPRAZOLE SODIUM
     Route: 065
  2. ASPIRIN [Interacting]
     Active Substance: ASPIRIN
     Route: 065
  3. METHOTREXATE [Interacting]
     Active Substance: METHOTREXATE
     Route: 065
  4. HYDROCHLOROTHIAZIDE [Interacting]
     Active Substance: HYDROCHLOROTHIAZIDE
     Route: 065
  5. TORSEMIDE [Interacting]
     Active Substance: TORSEMIDE
     Route: 065
  6. CANDESARTAN [Interacting]
     Active Substance: CANDESARTAN
     Route: 065
  7. RAMIPRIL [Interacting]
     Active Substance: RAMIPRIL
     Route: 065

REACTIONS (9)
  - Toxicity to various agents [Recovered/Resolved]
  - Lung infiltration [Recovered/Resolved]
  - Sepsis [Recovered/Resolved]
  - Thrombocytopenia [Recovered/Resolved]
  - Glomerular filtration rate decreased [Recovered/Resolved]
  - Leukopenia [Recovered/Resolved]
  - Myelosuppression [Recovered/Resolved]
  - Mucosal inflammation [Recovered/Resolved]
  - Drug interaction [Recovered/Resolved]
